FAERS Safety Report 5732548-1 (Version None)
Quarter: 2008Q2

REPORT INFORMATION
  Report Type: 
  Country: None (occurrence: None)
  Receive Date: 20080507
  Receipt Date: 20080422
  Transmission Date: 20081010
  Serious: Yes (Hospitalization)
  Sender: FDA-Public Use
  Company Number: JPKYO-L-20080003

PATIENT
  Age: 48 Year
  Sex: Male

DRUGS (8)
  1. NAVELBINE [Suspect]
     Indication: LUNG ADENOCARCINOMA STAGE I
     Dosage: 40 MG IV
     Route: 042
     Dates: start: 20070912, end: 20070920
  2. GEMZAR [Suspect]
     Indication: LUNG ADENOCARCINOMA STAGE I
  3. DECADRON [Concomitant]
  4. ACYCLOVIR [Concomitant]
  5. AMOBAN [Concomitant]
  6. VALTREX [Concomitant]
  7. ARASENA A [Concomitant]
  8. CLINDAMYCIN HCL [Concomitant]

REACTIONS (4)
  - HERPES ZOSTER [None]
  - NEUTROPHIL COUNT DECREASED [None]
  - PNEUMONITIS [None]
  - WHITE BLOOD CELL COUNT DECREASED [None]
